FAERS Safety Report 6140523-0 (Version None)
Quarter: 2009Q2

REPORT INFORMATION
  Report Type: 
  Country: None (occurrence: None)
  Receive Date: 20090402
  Receipt Date: 20090323
  Transmission Date: 20091009
  Serious: Yes (Other)
  Sender: FDA-Public Use
  Company Number: FR-RANBAXY-2009RR-22986

PATIENT
  Age: 11 Year
  Sex: Male

DRUGS (2)
  1. FLUOXETINE [Suspect]
     Dosage: 60 MG, 1/WEEK
     Dates: end: 19940720
  2. CIPROFLOXACIN [Suspect]

REACTIONS (2)
  - ALANINE AMINOTRANSFERASE INCREASED [None]
  - ASPARTATE AMINOTRANSFERASE INCREASED [None]
